FAERS Safety Report 19598913 (Version 2)
Quarter: 2021Q3

REPORT INFORMATION
  Report Type: Spontaneous
  Country: US (occurrence: US)
  Receive Date: 20210722
  Receipt Date: 20210727
  Transmission Date: 20211014
  Serious: Yes (Hospitalization, Other)
  Sender: FDA-Public Use
  Company Number: US-PFIZER INC-2020384262

PATIENT
  Age: 64 Year
  Sex: Female
  Weight: 67.59 kg

DRUGS (2)
  1. LYRICA [Suspect]
     Active Substance: PREGABALIN
     Indication: LUMBAR RADICULOPATHY
     Dosage: 150 MG, 2X/DAY (ONE CAPSULE TWO TIMES DAILY)
     Route: 048
  2. LYRICA [Suspect]
     Active Substance: PREGABALIN
     Indication: SCIATIC NERVE INJURY
     Dosage: 150 MG, 2X/DAY
     Route: 048

REACTIONS (5)
  - Post procedural haematoma [Unknown]
  - Post procedural haemorrhage [Unknown]
  - Blood count abnormal [Unknown]
  - Weight increased [Unknown]
  - Post procedural discharge [Unknown]

NARRATIVE: CASE EVENT DATE: 2021
